FAERS Safety Report 17057350 (Version 1)
Quarter: 2019Q4

REPORT INFORMATION
  Report Type: Report from Study
  Country: JP (occurrence: JP)
  Receive Date: 20191121
  Receipt Date: 20191121
  Transmission Date: 20200122
  Serious: Yes (Life-Threatening, Hospitalization)
  Sender: FDA-Public Use
  Company Number: PHJP2017JP031908

PATIENT
  Age: 13 Year
  Sex: Female
  Weight: 41.9 kg

DRUGS (39)
  1. MIDAZOLAM [Concomitant]
     Active Substance: MIDAZOLAM HYDROCHLORIDE
     Indication: SEDATION
     Dosage: 1 MG/H, UNK
     Route: 042
     Dates: start: 20160917, end: 20171121
  2. CYCLOPHOSPHAMID [Concomitant]
     Active Substance: CYCLOPHOSPHAMIDE
     Indication: ACUTE LYMPHOCYTIC LEUKAEMIA
     Dosage: 650 MG, UNK
     Route: 065
     Dates: start: 20170906, end: 20170907
  3. HICALIQ [Concomitant]
     Active Substance: CALCIUM GLUCONATE\DEXTROSE\MAGNESIUM SULFATE\POTASSIUM ACETATE\POTASSIUM PHOSPHATE, DIBASIC\ZINC SULFATE
     Indication: NUTRITIONAL SUPPLEMENTATION
     Dosage: 29
     Route: 042
     Dates: start: 20171020, end: 20171121
  4. AZUNOL [Concomitant]
     Indication: INFECTION PROPHYLAXIS
     Dosage: UNK
     Route: 065
     Dates: start: 20170907
  5. ALLOPURINOL. [Concomitant]
     Active Substance: ALLOPURINOL
     Indication: PROPHYLAXIS
     Dosage: AS NEEDED
     Route: 065
     Dates: start: 20170906, end: 20171121
  6. VITAJECT [Concomitant]
     Active Substance: CYANOCOBALAMIN\PYRIDOXAMINE HYDROCHLORIDE\THIAMINE HYDROCHLORIDE
     Indication: NUTRITIONAL SUPPLEMENTATION
     Dosage: 29 ML/H
     Route: 042
     Dates: start: 20171020, end: 20171121
  7. HUMULIN R [Concomitant]
     Active Substance: INSULIN HUMAN
     Indication: DIABETES MELLITUS MANAGEMENT
     Dosage: 1.4 IU/H, UNK
     Route: 042
     Dates: start: 20170916, end: 20171121
  8. ATARAX-P [Concomitant]
     Active Substance: HYDROXYZINE HYDROCHLORIDE
     Indication: PRURITUS
     Dosage: AS NEEDED
     Route: 042
     Dates: start: 20170914, end: 20171121
  9. ACELIO [Concomitant]
     Active Substance: ACETAMINOPHEN
     Indication: CYTOKINE RELEASE SYNDROME
     Dosage: AS NEEDED
     Route: 065
     Dates: start: 20170912, end: 20171027
  10. NEUTROGIN [Concomitant]
     Active Substance: LENOGRASTIM
     Indication: GRANULOCYTE COUNT DECREASED
     Dosage: 16 UG/HR, UNK
     Route: 042
     Dates: start: 20171011, end: 20171025
  11. CUBICIN [Concomitant]
     Active Substance: DAPTOMYCIN
     Indication: BACTERAEMIA
     Dosage: 400 MG, Q48H
     Route: 042
     Dates: start: 20171002, end: 20171023
  12. INTRALIPOS [Concomitant]
     Active Substance: SOYBEAN OIL
     Indication: NUTRITIONAL SUPPLEMENTATION
     Dosage: 50 ML, QD
     Route: 042
     Dates: start: 20171024, end: 20171119
  13. FENTANYL. [Concomitant]
     Active Substance: FENTANYL
     Indication: SEDATION
     Dosage: 0.025 MG/H, UNK
     Route: 042
     Dates: start: 20170911, end: 20171121
  14. AZUNOL [Concomitant]
     Indication: PRURITUS
     Dosage: AS NEEDED
     Route: 065
     Dates: start: 20170906, end: 20171121
  15. MIYA-BM [Concomitant]
     Active Substance: CLOSTRIDIUM BUTYRICUM SPORES STRAIN M-55
     Indication: ABDOMINAL DISCOMFORT
     Dosage: 1 DF, TID
     Route: 048
     Dates: start: 20171025
  16. AMIPAREN [Concomitant]
     Active Substance: AMINO ACIDS, SOURCE UNSPECIFIED
     Indication: NUTRITIONAL SUPPLEMENTATION
     Dosage: 29 ML/H
     Route: 042
     Dates: start: 20171020, end: 20171121
  17. POSTERISAN [Concomitant]
     Active Substance: LIDOCAINE
     Indication: HAEMORRHOIDS
     Dosage: AS NEEDED
     Route: 065
     Dates: start: 20170906, end: 20171004
  18. NAFAMOSTAT [Concomitant]
     Active Substance: NAFAMOSTAT
     Indication: CYTOKINE RELEASE SYNDROME
     Dosage: 30 MG/H, UNK
     Route: 065
     Dates: start: 20170922, end: 20171121
  19. CEFEPIME HYDROCHLORIDE. [Concomitant]
     Active Substance: CEFEPIME HYDROCHLORIDE
     Indication: BACTERAEMIA
     Dosage: 2 G, QD
     Route: 042
     Dates: start: 20171005, end: 20171110
  20. METHOTREXATE. [Concomitant]
     Active Substance: METHOTREXATE
     Indication: ACUTE LYMPHOCYTIC LEUKAEMIA
     Route: 065
  21. KYMRIAH [Suspect]
     Active Substance: TISAGENLECLEUCEL
     Indication: ACUTE LYMPHOCYTIC LEUKAEMIA
     Dosage: 2X10^9 TOTAL VIABLE CELLS PER DOSE, UNK
     Route: 042
     Dates: start: 20170912, end: 20170912
  22. RESTAMIN [Concomitant]
     Active Substance: DIPHENHYDRAMINE
     Indication: PRURITUS
     Dosage: AS NEEDED
     Route: 065
     Dates: start: 20170914, end: 20171031
  23. OMEPRAZOLE. [Concomitant]
     Active Substance: OMEPRAZOLE
     Indication: GASTRITIS PROPHYLAXIS
     Dosage: 20 MG, BID
     Route: 042
     Dates: start: 20170902, end: 20171121
  24. TEICOPLANIN [Concomitant]
     Active Substance: TEICOPLANIN
     Indication: BACTERAEMIA
     Dosage: 400 MG, TWO DAYS ON/ONE DAY OFF
     Route: 042
     Dates: start: 20170927, end: 20171022
  25. FLUDARABINE PHOSPHATE. [Concomitant]
     Active Substance: FLUDARABINE PHOSPHATE
     Indication: ACUTE LYMPHOCYTIC LEUKAEMIA
     Dosage: 39 MG, UNK
     Route: 065
     Dates: start: 20170906, end: 20170909
  26. MINERIC 5 [Concomitant]
     Indication: NUTRITIONAL SUPPLEMENTATION
     Dosage: 29 ML/H
     Route: 042
     Dates: start: 20171020, end: 20171121
  27. PRECEDEX [Concomitant]
     Active Substance: DEXMEDETOMIDINE HYDROCHLORIDE
     Indication: SEDATION
     Dosage: 20 ML/H
     Route: 042
     Dates: start: 20170831, end: 20171022
  28. PRIMPERAN [Concomitant]
     Active Substance: METOCLOPRAMIDE HYDROCHLORIDE
     Indication: NAUSEA
     Dosage: AS NEEDED
     Route: 042
     Dates: start: 20170904, end: 20171121
  29. NEUTROGIN [Concomitant]
     Active Substance: LENOGRASTIM
     Dosage: 350 UG, QD
     Route: 042
     Dates: start: 20171025, end: 20171112
  30. AMBISOME [Concomitant]
     Active Substance: AMPHOTERICIN B
     Indication: INFECTION PROPHYLAXIS
     Dosage: 120 MG, QD
     Route: 042
     Dates: start: 20171008, end: 20171120
  31. CEFOZOPRAN HYDROCHLORIDE [Concomitant]
     Active Substance: CEFOZOPRAN HYDROCHLORIDE
     Indication: PRODUCT USED FOR UNKNOWN INDICATION
     Dosage: UNK
     Route: 065
     Dates: start: 20170912, end: 20170921
  32. MEROPENEM. [Concomitant]
     Active Substance: MEROPENEM
     Indication: PRODUCT USED FOR UNKNOWN INDICATION
     Dosage: UNK
     Route: 065
     Dates: start: 20170922, end: 20171005
  33. BIOFERMIN R [Concomitant]
     Active Substance: DIETARY SUPPLEMENT\PROBIOTICS
     Indication: ABDOMINAL DISCOMFORT
     Dosage: 1 G, TID
     Route: 048
     Dates: start: 20170928
  34. URSO [Concomitant]
     Active Substance: URSODIOL
     Indication: HEPATIC ENZYME INCREASED
     Dosage: 50 MG, TID
     Route: 048
     Dates: start: 20170928
  35. PREDNISONE. [Concomitant]
     Active Substance: PREDNISONE
     Indication: ACUTE LYMPHOCYTIC LEUKAEMIA
     Route: 065
  36. INTEBAN [Concomitant]
     Active Substance: INDOMETHACIN
     Indication: PAIN PROPHYLAXIS
     Dosage: AS NEEDED
     Route: 065
     Dates: start: 20170902, end: 20171121
  37. HIRUDOID [Concomitant]
     Active Substance: GLYCOSAMINOGLYCANS
     Indication: DRY SKIN
     Dosage: AS NEEDED
     Route: 065
     Dates: start: 20170916, end: 20171121
  38. TYGACIL [Concomitant]
     Active Substance: TIGECYCLINE
     Indication: BACTERAEMIA
     Dosage: 50 MG, BID
     Route: 042
     Dates: start: 20171013, end: 20171023
  39. CYTARABINE. [Concomitant]
     Active Substance: CYTARABINE
     Indication: ACUTE LYMPHOCYTIC LEUKAEMIA
     Route: 065

REACTIONS (2)
  - Meningitis bacterial [Recovered/Resolved]
  - Encephalitis viral [Recovered/Resolved]

NARRATIVE: CASE EVENT DATE: 20171023
